FAERS Safety Report 11699075 (Version 1)
Quarter: 2015Q4

REPORT INFORMATION
  Report Type: Spontaneous
  Country: CH (occurrence: CH)
  Receive Date: 20151104
  Receipt Date: 20151104
  Transmission Date: 20160304
  Serious: Yes (Death)
  Sender: FDA-Public Use
  Company Number: CH-009507513-1510CHE014783

PATIENT
  Age: 85 Year
  Sex: Male
  Weight: 89 kg

DRUGS (19)
  1. EFFEXOR [Suspect]
     Active Substance: VENLAFAXINE HYDROCHLORIDE
     Dosage: 150 MG,1 PER 1 DAY
     Route: 048
     Dates: end: 20150911
  2. QUETIAPINE FUMARATE. [Suspect]
     Active Substance: QUETIAPINE FUMARATE
     Dosage: TOTAL DOSE OF 25 MG IN THE EVENING
     Route: 048
     Dates: start: 20150911, end: 20150911
  3. ACETAMINOPHEN. [Suspect]
     Active Substance: ACETAMINOPHEN
     Dosage: 1 G, 4 PER 1 DAY
     Dates: start: 20150904, end: 20150911
  4. REMERON [Suspect]
     Active Substance: MIRTAZAPINE
     Dosage: 15 MG,1 PER 1 DAY
     Route: 048
     Dates: end: 20150911
  5. DIOVAN [Suspect]
     Active Substance: VALSARTAN
     Dosage: 40 MG, 1 PER 1 DAY
     Route: 048
     Dates: end: 20150911
  6. SEROQUEL [Suspect]
     Active Substance: QUETIAPINE FUMARATE
     Dosage: 12.5 MG, 1 PER 1 DAY
     Route: 048
     Dates: start: 20150909, end: 20150909
  7. XANAX [Concomitant]
     Active Substance: ALPRAZOLAM
     Dosage: 0.5 MG, 1 PER 1 DAY
     Route: 048
     Dates: end: 20150911
  8. CONCOR [Suspect]
     Active Substance: BISOPROLOL FUMARATE
     Dosage: 2.5 MG, 2 PER 1 DAY
     Route: 048
     Dates: start: 20150911
  9. AUGMENTIN [Suspect]
     Active Substance: AMOXICILLIN\CLAVULANATE POTASSIUM
     Dosage: UNK
     Route: 042
     Dates: start: 20150907, end: 20150908
  10. PULMICORT TURBUHALER [Concomitant]
     Active Substance: BUDESONIDE
     Dosage: 2 MMOL, 1 PER 1 DAY
     Route: 055
     Dates: start: 20150908, end: 20150911
  11. NEXIUM [Suspect]
     Active Substance: ESOMEPRAZOLE MAGNESIUM
     Dosage: 40 MG
     Route: 048
     Dates: end: 20150911
  12. QUETIAPINE FUMARATE. [Suspect]
     Active Substance: QUETIAPINE FUMARATE
     Dosage: TOTAL DOSE OF 52.5 MG
     Route: 048
     Dates: start: 20150909, end: 20150909
  13. ATORVASTATIN [Concomitant]
     Active Substance: ATORVASTATIN
     Dosage: 20 MG, 1 PER 1 DAY
     Route: 048
     Dates: end: 20150911
  14. AZITHROMYCIN [Concomitant]
     Active Substance: AZITHROMYCIN ANHYDROUS
     Dosage: 250 MG, 3 PER 1 WEEK
     Route: 048
     Dates: end: 20150907
  15. DOSPIR [Suspect]
     Active Substance: ALBUTEROL SULFATE\IPRATROPIUM BROMIDE
     Dosage: 1 DF, 4 PER 1 DAY
     Route: 055
     Dates: start: 20150906, end: 20150911
  16. TOREM [Suspect]
     Active Substance: TORSEMIDE
     Dosage: UNK
     Dates: start: 201509, end: 20150911
  17. TAZOBAC [Suspect]
     Active Substance: PIPERACILLIN SODIUM\TAZOBACTAM SODIUM
     Dosage: 4 G, 3 PER 1 DAY
     Route: 042
     Dates: start: 20150908, end: 20150911
  18. ASPIRIN CARDIO [Concomitant]
     Active Substance: ASPIRIN
     Dosage: 100 MG, 1 PER 1 DAY
     Route: 048
     Dates: end: 20150911
  19. QUETIAPINE FUMARATE. [Suspect]
     Active Substance: QUETIAPINE FUMARATE
     Dosage: TOTAL DOSE OF 55 MG OVER THE DAY
     Route: 048
     Dates: start: 20150910, end: 20150910

REACTIONS (3)
  - Transaminases increased [Fatal]
  - Cardiac failure [Fatal]
  - Hypokalaemia [Fatal]

NARRATIVE: CASE EVENT DATE: 20150910
